FAERS Safety Report 16717546 (Version 2)
Quarter: 2019Q4

REPORT INFORMATION
  Report Type: Other
  Country: CA (occurrence: CA)
  Receive Date: 20190819
  Receipt Date: 20191018
  Transmission Date: 20200122
  Serious: Yes (Other)
  Sender: FDA-Public Use
  Company Number: CA-BECTON DICKINSON-2019BDN00304

PATIENT
  Age: 42 Year
  Sex: Female
  Weight: 81 kg

DRUGS (50)
  1. SIMPONI [Suspect]
     Active Substance: GOLIMUMAB
     Route: 058
  2. VITAMIN C [Concomitant]
     Active Substance: ASCORBIC ACID
  3. MARVELON [Concomitant]
     Active Substance: DESOGESTREL\ETHINYL ESTRADIOL
  4. VITAMIN C [Concomitant]
     Active Substance: ASCORBIC ACID
  5. CIMZIA [Suspect]
     Active Substance: CERTOLIZUMAB PEGOL
     Indication: RHEUMATOID ARTHRITIS
     Dosage: 400 MG
     Route: 058
  6. PANTOPRAZOLE [Concomitant]
     Active Substance: PANTOPRAZOLE
  7. VITAMIN D3 [Concomitant]
     Active Substance: CHOLECALCIFEROL
  8. CHLORHEXIDINE [Suspect]
     Active Substance: CHLORHEXIDINE
  9. ACTEMRA [Suspect]
     Active Substance: TOCILIZUMAB
  10. CERTOLIZUMAB PEGOL [Suspect]
     Active Substance: CERTOLIZUMAB PEGOL
     Dosage: 400 MG, 2X/MONTH
     Route: 058
  11. ENBREL [Suspect]
     Active Substance: ETANERCEPT
     Indication: RHEUMATOID ARTHRITIS
     Route: 058
  12. METHOTREXATE. [Suspect]
     Active Substance: METHOTREXATE
  13. FISH OIL [Concomitant]
     Active Substance: FISH OIL
  14. GREEN TEA TINCTURE [Concomitant]
  15. TYLENOL [Concomitant]
     Active Substance: ACETAMINOPHEN
  16. LEFLUNOMIDE. [Suspect]
     Active Substance: LEFLUNOMIDE
  17. COENZYME Q10 [Concomitant]
     Active Substance: UBIDECARENONE
  18. HYDROXYCHLOROQUINE SULFATE. [Concomitant]
     Active Substance: HYDROXYCHLOROQUINE SULFATE
  19. VITAMIN D [Concomitant]
     Active Substance: VITAMIN D NOS
  20. ZOPICLONE [Concomitant]
     Active Substance: ZOPICLONE
  21. SULFAMETHOXAZOLE; TRIMETHOPRIM [Concomitant]
     Active Substance: SULFAMETHOXAZOLE\TRIMETHOPRIM
  22. ARAVA [Suspect]
     Active Substance: LEFLUNOMIDE
  23. CERTOLIZUMAB PEGOL [Suspect]
     Active Substance: CERTOLIZUMAB PEGOL
     Indication: RHEUMATOID ARTHRITIS
     Dosage: 200 MG, 2X/MONTH
     Route: 058
  24. OXYCODONE TEREPHTHALATE [Suspect]
     Active Substance: OXYCODONE TEREPHTHALATE
  25. SULFAMETHOXAZOLE AND TRIMETHOPRIM [Suspect]
     Active Substance: SULFAMETHOXAZOLE\TRIMETHOPRIM
  26. DESOGESTREL; ETHINYL ESTRADIOL [Concomitant]
  27. IBUPROFEN. [Concomitant]
     Active Substance: IBUPROFEN
  28. PREDNISONE. [Concomitant]
     Active Substance: PREDNISONE
  29. VENTOLIN [Concomitant]
     Active Substance: ALBUTEROL SULFATE
  30. D-ALPHA TOCOPHEROL [Concomitant]
     Active Substance: .ALPHA.-TOCOPHEROL, D-
  31. OXYCODONE HYDROCHLORIDE. [Suspect]
     Active Substance: OXYCODONE HYDROCHLORIDE
  32. HYDROXYCHLOROQUINE [Concomitant]
     Active Substance: HYDROXYCHLOROQUINE
  33. PANTOLOC [Concomitant]
     Active Substance: PANTOPRAZOLE SODIUM
     Dosage: 40 MG, 2X/DAY
  34. ALFACALCIDOL [Concomitant]
     Active Substance: ALFACALCIDOL
  35. CHLOLECALCIFEROL [Concomitant]
  36. VITAMIN D [ERGOCALCIFEROL] [Concomitant]
     Active Substance: ERGOCALCIFEROL
  37. PERIOGARD [Suspect]
     Active Substance: CHLORHEXIDINE GLUCONATE
  38. TYLENOL [Concomitant]
     Active Substance: ACETAMINOPHEN
  39. CETIRIZINE [Concomitant]
     Active Substance: CETIRIZINE HYDROCHLORIDE
  40. ALPHA D [Concomitant]
  41. CETIRIZINE HYDROCHLORIDE. [Concomitant]
     Active Substance: CETIRIZINE HYDROCHLORIDE
     Dosage: 10 MG, 2X/DAY
  42. PANTOPRAZOLE SODIUM ANHYDROUS [Concomitant]
     Active Substance: PANTOPRAZOLE SODIUM ANHYDROUS
  43. TRIMETHOPRIM SULFAMETHOXAZOLE [Concomitant]
     Active Substance: SULFAMETHOXAZOLE\TRIMETHOPRIM
  44. VENTOLIN [Concomitant]
     Active Substance: ALBUTEROL SULFATE
  45. ACETAMINOPHEN. [Suspect]
     Active Substance: ACETAMINOPHEN
  46. ORENCIA [Suspect]
     Active Substance: ABATACEPT
  47. CAMELLIA SINENSIS; DALPHATOCOPHEROL; FISH OIL; VITAMIN D3 [Concomitant]
  48. PLAQUENIL [Concomitant]
     Active Substance: HYDROXYCHLOROQUINE SULFATE
  49. REACTINE [CETIRIZINE HYDROCHLORIDE] [Concomitant]
     Active Substance: CETIRIZINE HYDROCHLORIDE
     Dosage: 10 MG, 2X/DAY
  50. NUTRASEA+D [Concomitant]

REACTIONS (22)
  - Night sweats [Recovered/Resolved]
  - Sinusitis [Recovered/Resolved]
  - Off label use [Recovered/Resolved]
  - Rash [Recovered/Resolved]
  - Asthenia [Recovered/Resolved]
  - Insomnia [Recovered/Resolved]
  - Lower respiratory tract infection [Recovered/Resolved]
  - Muscle spasticity [Recovered/Resolved]
  - Urticaria [Recovered/Resolved]
  - Peripheral swelling [Recovered/Resolved]
  - Body temperature increased [Recovered/Resolved]
  - Headache [Recovered/Resolved]
  - Vomiting [Recovered/Resolved]
  - Abdominal pain upper [Recovered/Resolved]
  - Joint swelling [Recovered/Resolved]
  - Pain [Recovered/Resolved]
  - Pruritus [Recovered/Resolved]
  - Back pain [Recovered/Resolved]
  - Diarrhoea [Recovered/Resolved]
  - Respiratory disorder [Recovered/Resolved]
  - Contraindicated product administered [Recovered/Resolved]
  - Ear pain [Recovered/Resolved]
